FAERS Safety Report 11289109 (Version 2)
Quarter: 2015Q3

REPORT INFORMATION
  Report Type: Spontaneous
  Country: JP (occurrence: JP)
  Receive Date: 20150721
  Receipt Date: 20150723
  Transmission Date: 20151125
  Serious: Yes (Other)
  Sender: FDA-Public Use
  Company Number: JP-MALLINCKRODT-T201503539

PATIENT
  Age: 60 Year
  Sex: Male

DRUGS (16)
  1. LIXIANA [Concomitant]
     Active Substance: EDOXABAN TOSILATE MONOHYDRATE
     Dosage: 30 MG
     Route: 048
  2. LYRICA [Concomitant]
     Active Substance: PREGABALIN
     Dosage: 150 MG
     Route: 048
  3. METHADONE [Suspect]
     Active Substance: METHADONE HYDROCHLORIDE
     Dosage: 30 MG (DAILY DOSE 60 MG)
     Route: 048
     Dates: start: 20150526
  4. ZOMETA [Concomitant]
     Active Substance: ZOLEDRONIC ACID
     Dosage: 4 MG
     Route: 051
  5. METHADONE [Suspect]
     Active Substance: METHADONE HYDROCHLORIDE
     Dosage: 10 MG (DAILY DOSE 20 MG)
     Route: 048
     Dates: start: 20150507, end: 20150518
  6. FIRSTCIN [Concomitant]
     Active Substance: CEFOZOPRAN HYDROCHLORIDE
     Dosage: 2000 MG
     Route: 051
     Dates: start: 20150413, end: 20150416
  7. OXINORM [Concomitant]
     Active Substance: OXYCODONE HYDROCHLORIDE
     Dosage: 5 MG, PRN
     Route: 048
     Dates: start: 20150403
  8. FLORID [Concomitant]
     Active Substance: MICONAZOLE
     Dosage: 5 MG
     Route: 048
     Dates: start: 20150427, end: 20150527
  9. METHADONE [Suspect]
     Active Substance: METHADONE HYDROCHLORIDE
     Indication: CANCER PAIN
     Dosage: 10 MG DAILY DOSE
     Route: 048
     Dates: start: 20150402, end: 20150507
  10. MEROPENEM. [Concomitant]
     Active Substance: MEROPENEM
     Dosage: 1000 MG
     Route: 051
     Dates: start: 20150416, end: 20150421
  11. DOCETAXEL. [Concomitant]
     Active Substance: DOCETAXEL
     Dosage: 65 MG
     Route: 051
     Dates: end: 20150408
  12. PARIET [Concomitant]
     Active Substance: RABEPRAZOLE SODIUM
     Dosage: 10 MG
  13. METHADONE [Suspect]
     Active Substance: METHADONE HYDROCHLORIDE
     Dosage: 15 MG (DAILY DOSE 30 MG)
     Route: 048
     Dates: start: 20150518, end: 20150526
  14. NAIXAN [Concomitant]
     Active Substance: NAPROXEN SODIUM
     Dosage: 300 MG
     Route: 048
  15. GEMZAR [Concomitant]
     Active Substance: GEMCITABINE HYDROCHLORIDE
     Dosage: 1300 MG
     Route: 051
     Dates: end: 20150408
  16. LANSOPRAZOLE. [Concomitant]
     Active Substance: LANSOPRAZOLE
     Dosage: 30 MG
     Route: 048
     Dates: start: 20150420

REACTIONS (2)
  - Somnolence [Not Recovered/Not Resolved]
  - Delirium [Not Recovered/Not Resolved]

NARRATIVE: CASE EVENT DATE: 20150407
